FAERS Safety Report 21520098 (Version 1)
Quarter: 2022Q4

REPORT INFORMATION
  Report Type: Spontaneous
  Country: ES (occurrence: ES)
  Receive Date: 20221028
  Receipt Date: 20221028
  Transmission Date: 20230113
  Serious: Yes (Other)
  Sender: FDA-Public Use
  Company Number: None

PATIENT
  Age: 86 Year
  Sex: Male

DRUGS (12)
  1. DAFIRO [Suspect]
     Active Substance: AMLODIPINE\VALSARTAN
     Indication: Essential hypertension
     Dosage: 160 MG, ( DECE, FILM-COATED TABLETS, 28 TABLETS
     Route: 048
     Dates: start: 20220914
  2. TORSEMIDE [Concomitant]
     Active Substance: TORSEMIDE
     Indication: Essential hypertension
     Dosage: 5 MG, ((ED, 5 MG EFG TABLETS, 30 TABLETS)
     Route: 048
     Dates: start: 20220915
  3. TOUJEO [Concomitant]
     Active Substance: INSULIN GLARGINE
     Indication: Type 2 diabetes mellitus
     Dosage: 42 IU, Q24H, (300 UNITS/ML SOLOSTAR SOLUTION FOR INJECTION IN PRE-FILLED PEN, 3 PENS 1.5 ML))
     Route: 058
     Dates: start: 20210325
  4. METFORMIN HYDROCHLORIDE [Concomitant]
     Active Substance: METFORMIN HYDROCHLORIDE
     Indication: Diabetes mellitus
     Dosage: 850 MG, ((DE, CINFA 850 MG FILM-COATED TABLETS EFG, 50 TABLETS)
     Route: 048
     Dates: start: 20131120
  5. CETIRIZINE HYDROCHLORIDE [Concomitant]
     Active Substance: CETIRIZINE HYDROCHLORIDE
     Indication: Rhinitis
     Dosage: 10 MG,  (DE, CINFA 10 MG FILM-COATED TABLETS EFG, 20 TABLETS
     Route: 065
     Dates: start: 20220726
  6. CYANOCOBALAMIN [Concomitant]
     Active Substance: CYANOCOBALAMIN
     Indication: Deficiency anaemia
     Dosage: 1 MG, QMO, (1,000 MICROGRAMS SOLUTION FOR INJECTION, 5 AMPOULES OF 2 ML)
     Route: 030
     Dates: start: 20220915
  7. ATORVASTATIN [Concomitant]
     Active Substance: ATORVASTATIN
     Indication: Diabetes mellitus
     Dosage: 20 MG,  CE, 20 MG FILM-COATED TABLETS EFG , 28 TABLETS)
     Route: 048
     Dates: start: 20131008
  8. REPAGLINIDE [Concomitant]
     Active Substance: REPAGLINIDE
     Indication: Type 2 diabetes mellitus
     Dosage: 0.5 MG, (DECO, 0.5 MG, TABLETS, 90 TABLETS)
     Route: 048
     Dates: start: 20210312
  9. CARVEDILOL CINFA [Concomitant]
     Indication: Essential hypertension
     Dosage: 12.5 MG, (DECE, 25 MG EFG TABLETS, 28 TABLETS)
     Route: 048
     Dates: start: 20210902
  10. ACETAMINOPHEN [Concomitant]
     Active Substance: ACETAMINOPHEN
     Indication: Arthralgia
     Dosage: 1 G, ( DECOCE, 1 G EFG TABLETS, 40 TABLETS))
     Route: 048
     Dates: start: 20170508
  11. DOXAZOSIN MESYLATE [Concomitant]
     Active Substance: DOXAZOSIN MESYLATE
     Indication: Essential hypertension
     Dosage: 4 MG, EC, 4 MG MODIFIED-RELEASE TABLETS, 28 TABLETS)
     Route: 048
     Dates: start: 20220823
  12. CROMATONBIC B12 [Concomitant]
     Indication: Deficiency anaemia
     Dosage: 1 MG, QW, (C/7 DAYS, 1000 INJECTIONS, 8 AMPOULES OF 1 ML)
     Route: 030
     Dates: start: 20220915

REACTIONS (2)
  - Face oedema [Not Recovered/Not Resolved]
  - Oedema peripheral [Not Recovered/Not Resolved]

NARRATIVE: CASE EVENT DATE: 20221001
